FAERS Safety Report 20710004 (Version 1)
Quarter: 2022Q2

REPORT INFORMATION
  Report Type: Spontaneous
  Country: SK (occurrence: SK)
  Receive Date: 20220414
  Receipt Date: 20220414
  Transmission Date: 20220721
  Serious: Yes (Other)
  Sender: FDA-Public Use
  Company Number: SK-BAYER-2022A050142

PATIENT
  Sex: Female

DRUGS (1)
  1. MIRENA [Suspect]
     Active Substance: LEVONORGESTREL
     Dosage: 20?G/DAY
     Route: 015
     Dates: start: 20220315, end: 20220321

REACTIONS (4)
  - Syncope [None]
  - Procedural pain [None]
  - Asthenia [None]
  - Abdominal pain lower [None]

NARRATIVE: CASE EVENT DATE: 20220301
